FAERS Safety Report 21066335 (Version 1)
Quarter: 2022Q3

REPORT INFORMATION
  Report Type: Spontaneous
  Country: US (occurrence: US)
  Receive Date: 20220711
  Receipt Date: 20220711
  Transmission Date: 20221027
  Serious: No
  Sender: FDA-Public Use
  Company Number: US-JAZZ-2022-US-014091

PATIENT
  Age: 20 Year
  Sex: Male

DRUGS (1)
  1. RYLAZE [Suspect]
     Active Substance: ASPARAGINASE ERWINIA CHRYSANTHEMI (RECOMBINANT)-RYWN
     Indication: Acute lymphocytic leukaemia
     Dosage: 25 MILLIGRAM/SQ. METER  (50 MG EVERY MON WED FRI)

REACTIONS (1)
  - Drug resistance [Unknown]
